FAERS Safety Report 7747377-7 (Version None)
Quarter: 2011Q3

REPORT INFORMATION
  Report Type: 
  Country: None (occurrence: None)
  Receive Date: 20110909
  Receipt Date: 20110901
  Transmission Date: 20111222
  Serious: Yes (Other)
  Sender: FDA-Public Use
  Company Number: 1034096

PATIENT
  Age: 74 Year
  Sex: Female

DRUGS (5)
  1. NEBIVOLOL HCL [Concomitant]
  2. PREDNISONE [Concomitant]
  3. IRINOTECAN HCL [Suspect]
     Indication: NEOPLASM MALIGNANT
     Dosage: 85 MG, CYCLIC, INTRAVENOUS (NOT OTHERWISE SPECIFIED)
     Route: 042
     Dates: start: 20110526, end: 20110714
  4. OMEPRAZOLE [Concomitant]
  5. ERBITUX [Suspect]
     Indication: NEOPLASM MALIGNANT
     Dosage: 340 MG, CYCLIC, INTRAVENOUS (NOT OTHERWISE SPECIFIED)
     Route: 042
     Dates: start: 20110526, end: 20110714

REACTIONS (2)
  - DYSENTERY [None]
  - DECREASED APPETITE [None]
